FAERS Safety Report 11402466 (Version 1)
Quarter: 2015Q3

REPORT INFORMATION
  Report Type: Spontaneous
  Country: US (occurrence: US)
  Receive Date: 20150821
  Receipt Date: 20150821
  Transmission Date: 20151125
  Serious: No
  Sender: FDA-Public Use
  Company Number: US-ROCHE-1315486

PATIENT
  Sex: Female

DRUGS (11)
  1. XANAX [Concomitant]
     Active Substance: ALPRAZOLAM
  2. PRILOSEC [Concomitant]
     Active Substance: OMEPRAZOLE MAGNESIUM
  3. PEGASYS [Suspect]
     Active Substance: PEGINTERFERON ALFA-2A
     Indication: HEPATITIS C
     Dosage: DOSE: 180 / 0.5 ML?SHOT ONCE A WEEK
     Route: 065
  4. VENLAFAXINE [Concomitant]
     Active Substance: VENLAFAXINE HYDROCHLORIDE
  5. OXYCODONE [Concomitant]
     Active Substance: OXYCODONE
  6. RIBAVIRIN. [Suspect]
     Active Substance: RIBAVIRIN
     Indication: HEPATITIS C
     Dosage: 6 PILLS A DAY
     Route: 065
  7. PROZAC [Concomitant]
     Active Substance: FLUOXETINE HYDROCHLORIDE
  8. METFORMIN [Concomitant]
     Active Substance: METFORMIN HYDROCHLORIDE
     Route: 065
  9. BUSPIRONE [Concomitant]
     Active Substance: BUSPIRONE HYDROCHLORIDE
  10. MORPHINE [Concomitant]
     Active Substance: MORPHINE
  11. FENTANYL. [Concomitant]
     Active Substance: FENTANYL
     Route: 065

REACTIONS (25)
  - Abdominal discomfort [Unknown]
  - Pain [Unknown]
  - Migraine [Unknown]
  - Influenza [Unknown]
  - Erythema [Unknown]
  - Dyspepsia [Unknown]
  - Decreased appetite [Unknown]
  - Alopecia [Unknown]
  - General physical health deterioration [Unknown]
  - Liver disorder [Unknown]
  - Muscle spasms [Unknown]
  - Hypoaesthesia [Unknown]
  - Pyrexia [Unknown]
  - Loose tooth [Unknown]
  - Gastrointestinal disorder [Unknown]
  - Gastric disorder [Unknown]
  - Visual impairment [Unknown]
  - Pancreatitis [Unknown]
  - Productive cough [Unknown]
  - Musculoskeletal chest pain [Unknown]
  - Dry mouth [Unknown]
  - Dyspnoea [Unknown]
  - Nerve injury [Unknown]
  - Tenderness [Unknown]
  - Paraesthesia [Unknown]
